FAERS Safety Report 9550490 (Version 2)
Quarter: 2014Q2

REPORT INFORMATION
  Report Type: Spontaneous
  Country: US (occurrence: US)
  Receive Date: 20130924
  Receipt Date: 20140402
  Transmission Date: 20141212
  Serious: No
  Sender: FDA-Public Use
  Company Number: US-SANOFI-AVENTIS-2013SA082808

PATIENT
  Age: 61 Year
  Sex: Female
  Weight: 57 kg

DRUGS (8)
  1. AUBAGIO [Suspect]
     Indication: MULTIPLE SCLEROSIS
     Dosage: PRODUCT START DATE- MID MARCH-2013
     Route: 048
     Dates: start: 20130326, end: 20130503
  2. ALL OTHER THERAPEUTIC PRODUCTS [Concomitant]
     Route: 048
  3. CALCIUM [Concomitant]
     Route: 048
  4. ALL OTHER THERAPEUTIC PRODUCTS [Concomitant]
  5. FLONASE [Concomitant]
     Dosage: 50 MG PUFFS IN BOTH NOSTRILS
  6. NITROFURANTOIN [Concomitant]
     Route: 048
  7. TRAVATAN [Concomitant]
     Dosage: 0.04% DROPS
  8. VITAMIN C [Concomitant]

REACTIONS (2)
  - Diarrhoea haemorrhagic [Recovered/Resolved]
  - Adverse event [Not Recovered/Not Resolved]
